FAERS Safety Report 23867215 (Version 3)
Quarter: 2024Q2

REPORT INFORMATION
  Report Type: Spontaneous
  Country: NZ (occurrence: NZ)
  Receive Date: 20240517
  Receipt Date: 20240625
  Transmission Date: 20240716
  Serious: Yes (Death)
  Sender: FDA-Public Use
  Company Number: NZ-MYLANLABS-2024M1043897

PATIENT
  Sex: Male

DRUGS (10)
  1. CLOZARIL [Suspect]
     Active Substance: CLOZAPINE
     Indication: Schizophrenia
     Dosage: 37.5 MILLIGRAM, QD (NOCTE)
     Route: 048
     Dates: start: 20240506, end: 20240513
  2. CLOZARIL [Suspect]
     Active Substance: CLOZAPINE
     Indication: Dementia
  3. CLOZARIL [Suspect]
     Active Substance: CLOZAPINE
     Indication: Psychotic disorder
  4. PAROXETINE [Concomitant]
     Active Substance: PAROXETINE
     Indication: Depression
     Dosage: 30 MILLIGRAM, QD (MANE)
     Route: 048
     Dates: start: 2020, end: 20240430
  5. SERTRALINE [Concomitant]
     Active Substance: SERTRALINE HYDROCHLORIDE
     Indication: Depression
     Dosage: 100 MILLIGRAM, QD (MANE)
     Route: 048
     Dates: start: 20240423, end: 20240430
  6. QUETIAPINE [Concomitant]
     Active Substance: QUETIAPINE
     Indication: Agitation
     Dosage: 50 MILLIGRAM, TID
     Route: 065
     Dates: start: 20240417, end: 20240506
  7. HALOPERIDOL [Concomitant]
     Active Substance: HALOPERIDOL
     Indication: Agitation
     Dosage: 1.5 MILLIGRAM, TID
     Route: 048
     Dates: start: 20240328, end: 20240410
  8. HALOPERIDOL [Concomitant]
     Active Substance: HALOPERIDOL
     Indication: Psychotic disorder
  9. OLANZAPINE [Concomitant]
     Active Substance: OLANZAPINE
     Indication: Agitation
     Dosage: 2.5 MILLIGRAM, QD (DAILY)
     Route: 048
     Dates: start: 20240409, end: 20240417
  10. OLANZAPINE [Concomitant]
     Active Substance: OLANZAPINE
     Indication: Psychotic disorder

REACTIONS (2)
  - Dementia [Fatal]
  - Off label use [Unknown]
